FAERS Safety Report 5102694-4 (Version None)
Quarter: 2006Q3

REPORT INFORMATION
  Report Type: 
  Country: None (occurrence: None)
  Receive Date: 20060912
  Receipt Date: 20060905
  Transmission Date: 20061208
  Serious: Yes (Death, Hospitalization)
  Sender: FDA-Public Use
  Company Number: US-JNJFOC-20060902125

PATIENT
  Age: 90 Year
  Sex: Female

DRUGS (3)
  1. ACETAMINOPHEN [Suspect]
     Route: 048
  2. ACETAMINOPHEN [Suspect]
     Indication: ARTHRALGIA
     Dosage: 4-6 TABLETS (TOTAL OF 2000-3000MG) OF 500MG ACETAMINOPHEN FOR SEVERAL WEEKS, ORAL
     Route: 048
  3. ETHANOL [Suspect]
     Indication: DRUG USE FOR UNKNOWN INDICATION
     Dosage: 4 DRINKS OF GIN DAILY, ORAL
     Route: 048

REACTIONS (4)
  - CIRCULATORY COLLAPSE [None]
  - DRUG TOXICITY [None]
  - HEPATIC FAILURE [None]
  - MEDICATION ERROR [None]
